FAERS Safety Report 12454276 (Version 1)
Quarter: 2016Q2

REPORT INFORMATION
  Report Type: Other
  Country: ES (occurrence: ES)
  Receive Date: 20160610
  Receipt Date: 20160610
  Transmission Date: 20160815
  Serious: Yes (Death, Other)
  Sender: FDA-Public Use
  Company Number: ES-ACTELION-A-CH2016-137415

PATIENT
  Age: 30 Year
  Sex: Female

DRUGS (1)
  1. ZAVESCA [Suspect]
     Active Substance: MIGLUSTAT
     Indication: NIEMANN-PICK DISEASE
     Route: 048

REACTIONS (10)
  - Disease progression [Fatal]
  - Meningitis chemical [Recovered/Resolved]
  - Candida infection [Unknown]
  - Sepsis [Unknown]
  - Pneumonia aspiration [Unknown]
  - Diarrhoea [Unknown]
  - Pyrexia [Unknown]
  - Seizure [Unknown]
  - Niemann-Pick disease [Fatal]
  - No therapeutic response [Unknown]
